FAERS Safety Report 24610953 (Version 1)
Quarter: 2024Q4

REPORT INFORMATION
  Report Type: Report from Study
  Country: US (occurrence: US)
  Receive Date: 20241112
  Receipt Date: 20241112
  Transmission Date: 20250114
  Serious: Yes (Hospitalization, Other)
  Sender: TAKEDA
  Company Number: US-TAKEDA-2024TUS114000

PATIENT
  Age: 7 Year
  Sex: Male

DRUGS (14)
  1. TEDUGLUTIDE [Suspect]
     Active Substance: TEDUGLUTIDE
     Indication: Short-bowel syndrome
     Dosage: 1.2 MILLIGRAM, QD
     Dates: start: 20160617, end: 20170306
  2. TEDUGLUTIDE [Suspect]
     Active Substance: TEDUGLUTIDE
     Dosage: 1.6 MILLIGRAM, QD
     Dates: start: 20170307
  3. TEDUGLUTIDE [Suspect]
     Active Substance: TEDUGLUTIDE
  4. TEDUGLUTIDE [Suspect]
     Active Substance: TEDUGLUTIDE
  5. CHOLECALCIFEROL [Concomitant]
     Active Substance: CHOLECALCIFEROL
     Indication: Hypovitaminosis
     Dosage: 10000 INTERNATIONAL UNIT, BID
     Dates: start: 20150421, end: 20161028
  6. CHOLECALCIFEROL [Concomitant]
     Active Substance: CHOLECALCIFEROL
     Dosage: 15000 INTERNATIONAL UNIT, QD
     Dates: start: 20161028
  7. BACLOFEN [Concomitant]
     Active Substance: BACLOFEN
     Indication: Muscle spasms
     Dosage: 5 MILLIGRAM, BID
     Dates: start: 20150313
  8. METRONIDAZOLE [Concomitant]
     Active Substance: METRONIDAZOLE
     Indication: Overgrowth bacterial
     Dosage: 250 MILLIGRAM, BID
     Dates: start: 20151211
  9. GENTAMICIN [Concomitant]
     Active Substance: GENTAMICIN
     Indication: Overgrowth bacterial
     Dosage: 200 MILLIGRAM, BID
     Dates: start: 20120821
  10. ACETAMINOPHEN [Concomitant]
     Active Substance: ACETAMINOPHEN
     Indication: Pyrexia
     Dosage: 320 MILLIGRAM
  11. ACETAMINOPHEN [Concomitant]
     Active Substance: ACETAMINOPHEN
     Indication: Discomfort
  12. LANSOPRAZOLE [Concomitant]
     Active Substance: LANSOPRAZOLE
     Indication: Gastrooesophageal reflux disease
     Dosage: 18 MILLIGRAM, BID
     Dates: start: 20100301, end: 20160920
  13. HEPARIN SODIUM [Concomitant]
     Active Substance: HEPARIN SODIUM
     Indication: Complication associated with device
     Dosage: 1.50 MILLILITER
     Dates: start: 20140213, end: 20161004
  14. SELENIOUS ACID [Concomitant]
     Active Substance: SELENIOUS ACID
     Indication: Prophylaxis
     Dosage: 100 MICROGRAM

REACTIONS (1)
  - Cerebral palsy [Recovered/Resolved]

NARRATIVE: CASE EVENT DATE: 20170306
